APPROVED DRUG PRODUCT: CYTARABINE
Active Ingredient: CYTARABINE
Strength: 1GM/VIAL
Dosage Form/Route: INJECTABLE;INJECTION
Application: A074245 | Product #001
Applicant: WEST-WARD PHARMACEUTICALS INTERNATIONAL LTD
Approved: Aug 31, 1994 | RLD: No | RS: Yes | Type: RX